FAERS Safety Report 7818861-2 (Version None)
Quarter: 2011Q4

REPORT INFORMATION
  Report Type: 
  Country: None (occurrence: None)
  Receive Date: 20111018
  Receipt Date: 20111005
  Transmission Date: 20120403
  Serious: Yes (Life-Threatening)
  Sender: FDA-Public Use
  Company Number: GB-RANBAXY-2011R1-47048

PATIENT
  Age: 64 Year
  Sex: Female
  Weight: 68 kg

DRUGS (2)
  1. BENDROFLUMETHIAZIDE [Concomitant]
     Indication: HYPERTENSION
     Dosage: UNK
     Route: 048
     Dates: start: 20011005
  2. AMOXICILLIN AND CLAVULANATE POTASSIUM [Suspect]
     Indication: URINARY TRACT INFECTION
     Dosage: UNK
     Route: 048
     Dates: start: 20110706, end: 20110706

REACTIONS (3)
  - ANGIOEDEMA [None]
  - CHEST DISCOMFORT [None]
  - RASH [None]
